FAERS Safety Report 21102545 (Version 5)
Quarter: 2024Q1

REPORT INFORMATION
  Report Type: Other
  Country: CA (occurrence: None)
  Receive Date: 20220719
  Receipt Date: 20240211
  Transmission Date: 20240409
  Serious: No
  Sender: FDA-Public Use
  Company Number: CA-ROCHE-2632961

PATIENT
  Sex: Female

DRUGS (4)
  1. OCREVUS [Suspect]
     Active Substance: OCRELIZUMAB
     Indication: Relapsing-remitting multiple sclerosis
     Dosage: 300 MG AT DAY 0 AND 14, THEN 600 MG EVERY 6 MONTH
     Route: 042
     Dates: start: 20180710
  2. GRAVOL [Concomitant]
     Active Substance: DIMENHYDRINATE
     Indication: Nausea
     Dosage: 25-50 MG. ?OR 12.5 MG IV EVERY 4 HOURS
     Route: 048
  3. PEPCID [Concomitant]
     Active Substance: FAMOTIDINE
  4. ZANTAC [Concomitant]
     Active Substance: RANITIDINE HYDROCHLORIDE

REACTIONS (6)
  - White blood cell count increased [Recovered/Resolved]
  - Blood iron decreased [Not Recovered/Not Resolved]
  - COVID-19 [Recovered/Resolved]
  - White blood cell count decreased [Unknown]
  - Heavy menstrual bleeding [Unknown]
  - Immunodeficiency [Unknown]
